FAERS Safety Report 14520161 (Version 6)
Quarter: 2019Q1

REPORT INFORMATION
  Report Type: Report from Study
  Country: US (occurrence: US)
  Receive Date: 20180212
  Receipt Date: 20190201
  Transmission Date: 20190417
  Serious: Yes (Death, Hospitalization, Other)
  Sender: FDA-Public Use
  Company Number: US-TAKEDA-2018TUS003611

PATIENT
  Sex: Female

DRUGS (1)
  1. PONATINIB [Suspect]
     Active Substance: PONATINIB
     Indication: CHRONIC MYELOID LEUKAEMIA
     Dosage: 30 MG, QD
     Route: 048
     Dates: start: 20180124

REACTIONS (22)
  - Death [Fatal]
  - Vomiting [Unknown]
  - White blood cell count increased [Unknown]
  - Platelet count increased [Unknown]
  - Heart rate increased [Unknown]
  - Rash [Unknown]
  - Dehydration [Unknown]
  - Disease susceptibility [Unknown]
  - Fatigue [Unknown]
  - Blood iron abnormal [Unknown]
  - Diabetes mellitus [Unknown]
  - Alopecia [Unknown]
  - Influenza [Unknown]
  - Renal failure [Unknown]
  - Hepatic cirrhosis [Unknown]
  - Bronchitis [Unknown]
  - Muscle spasms [Unknown]
  - Blood pressure abnormal [Unknown]
  - Skin exfoliation [Unknown]
  - Insomnia [Unknown]
  - Dry skin [Not Recovered/Not Resolved]
  - Constipation [Unknown]
